FAERS Safety Report 6396435-0 (Version None)
Quarter: 2009Q4

REPORT INFORMATION
  Report Type: 
  Country: None (occurrence: None)
  Receive Date: 20091012
  Receipt Date: 20091005
  Transmission Date: 20100525
  Serious: Yes (Life-Threatening, Hospitalization, Other)
  Sender: FDA-Public Use
  Company Number: JP-JNJFOC-20090702630

PATIENT
  Sex: Female

DRUGS (31)
  1. TOPINA [Suspect]
     Indication: EPILEPSY
     Route: 048
  2. TEGRETOL [Concomitant]
     Route: 048
  3. TEGRETOL [Concomitant]
     Route: 048
  4. TEGRETOL [Concomitant]
     Route: 048
  5. TEGRETOL [Concomitant]
     Route: 048
  6. TEGRETOL [Concomitant]
     Route: 048
  7. TEGRETOL [Concomitant]
     Route: 048
  8. TEGRETOL [Concomitant]
     Route: 048
  9. TEGRETOL [Concomitant]
     Route: 048
  10. TEGRETOL [Concomitant]
     Route: 048
  11. TEGRETOL [Concomitant]
     Route: 048
  12. TEGRETOL [Concomitant]
     Route: 048
  13. TEGRETOL [Concomitant]
     Indication: EPILEPSY
     Route: 048
  14. ALEVIATIN [Concomitant]
     Route: 048
  15. ALEVIATIN [Concomitant]
     Route: 048
  16. ALEVIATIN [Concomitant]
     Route: 048
  17. ALEVIATIN [Concomitant]
     Route: 048
  18. ALEVIATIN [Concomitant]
     Route: 048
  19. ALEVIATIN [Concomitant]
     Route: 048
  20. ALEVIATIN [Concomitant]
     Route: 048
  21. ALEVIATIN [Concomitant]
     Route: 048
  22. ALEVIATIN [Concomitant]
     Route: 048
  23. ALEVIATIN [Concomitant]
     Route: 048
  24. ALEVIATIN [Concomitant]
     Indication: EPILEPSY
     Route: 048
  25. DEPAS [Concomitant]
  26. ULGUT [Concomitant]
  27. CERCINE [Concomitant]
  28. LOXONIN [Concomitant]
  29. ZONISAMIDE [Concomitant]
  30. MYSTAN [Concomitant]
  31. VALPROATE SODIUM [Concomitant]

REACTIONS (5)
  - DYSLALIA [None]
  - GRAND MAL CONVULSION [None]
  - PSYCHIATRIC SYMPTOM [None]
  - RHABDOMYOLYSIS [None]
  - STATUS EPILEPTICUS [None]
